FAERS Safety Report 25399059 (Version 1)
Quarter: 2025Q2

REPORT INFORMATION
  Report Type: Spontaneous
  Country: NL (occurrence: NL)
  Receive Date: 20250605
  Receipt Date: 20250605
  Transmission Date: 20250717
  Serious: Yes (Life-Threatening)
  Sender: TEVA
  Company Number: None

PATIENT
  Age: 32 Year
  Sex: Male
  Weight: 100 kg

DRUGS (1)
  1. ESCITALOPRAM [Suspect]
     Active Substance: ESCITALOPRAM OXALATE
     Indication: Depression
     Dosage: 1DD 1 PIECES, BRAND NAME NOT SPECIFIED
     Route: 048
     Dates: start: 20240801

REACTIONS (1)
  - Suicidal ideation [Recovered/Resolved]
